FAERS Safety Report 18323707 (Version 1)
Quarter: 2020Q3

REPORT INFORMATION
  Report Type: Other
  Country: AU (occurrence: AU)
  Receive Date: 20200928
  Receipt Date: 20200928
  Transmission Date: 20201103
  Serious: Yes (Hospitalization)
  Sender: FDA-Public Use
  Company Number: AU-GE HEALTHCARE LIFE SCIENCES-2020CSU004868

PATIENT

DRUGS (4)
  1. GADOVIST [Suspect]
     Active Substance: GADOBUTROL
     Indication: DIAGNOSTIC PROCEDURE
     Dosage: UNK, SINGLE
     Route: 065
     Dates: start: 20150731, end: 20150731
  2. OMNIPAQUE [Suspect]
     Active Substance: IOHEXOL
     Indication: PRODUCT USED FOR UNKNOWN INDICATION
  3. GADOVIST [Suspect]
     Active Substance: GADOBUTROL
     Indication: PRODUCT USED FOR UNKNOWN INDICATION
  4. OMNIPAQUE [Suspect]
     Active Substance: IOHEXOL
     Indication: DIAGNOSTIC PROCEDURE
     Dosage: UNK, SINGLE
     Route: 065
     Dates: start: 20150731, end: 20150731

REACTIONS (2)
  - Pneumothorax [Unknown]
  - Cough [Unknown]

NARRATIVE: CASE EVENT DATE: 20150731
